FAERS Safety Report 9996345 (Version 1)
Quarter: 2014Q1

REPORT INFORMATION
  Report Type: Spontaneous
  Country: US (occurrence: US)
  Receive Date: 20140311
  Receipt Date: 20140311
  Transmission Date: 20141002
  Serious: Yes (Death)
  Sender: FDA-Public Use
  Company Number: US-GLAXOSMITHKLINE-A1063545A

PATIENT
  Age: 85 Year
  Sex: Male

DRUGS (5)
  1. ADVAIR [Suspect]
     Indication: PRODUCT USED FOR UNKNOWN INDICATION
     Route: 065
  2. CARVEDILOL [Concomitant]
  3. FERROUS SULFATE [Concomitant]
  4. SIMVASTATIN [Concomitant]
  5. SPIRIVA [Concomitant]

REACTIONS (5)
  - Loss of consciousness [Fatal]
  - Respiratory arrest [Fatal]
  - Resuscitation [Recovered/Resolved]
  - Life support [Recovered/Resolved]
  - Brain hypoxia [Fatal]
